FAERS Safety Report 4955036-9 (Version None)
Quarter: 2006Q1

REPORT INFORMATION
  Report Type: 
  Country: None (occurrence: None)
  Receive Date: 20060322
  Receipt Date: 20060301
  Transmission Date: 20060701
  Serious: Yes (Other)
  Sender: FDA-Public Use
  Company Number: US200603001137

PATIENT
  Age: 62 Year
  Sex: Female

DRUGS (1)
  1. EVISTA [Suspect]
     Dosage: 60 MG, UNK, ORAL
     Route: 048
     Dates: start: 20020501, end: 20060225

REACTIONS (3)
  - BODY FAT DISORDER [None]
  - ENDOMETRIAL CANCER STAGE II [None]
  - VAGINAL HAEMORRHAGE [None]
